FAERS Safety Report 25982905 (Version 1)
Quarter: 2025Q4

REPORT INFORMATION
  Report Type: Report from Study
  Country: US (occurrence: US)
  Receive Date: 20251031
  Receipt Date: 20251031
  Transmission Date: 20260119
  Serious: Yes (Hospitalization, Other)
  Sender: GSK
  Company Number: US-GSK-US2025134861

PATIENT
  Sex: Female

DRUGS (1)
  1. MEPOLIZUMAB [Suspect]
     Active Substance: MEPOLIZUMAB
     Indication: Asthma
     Dosage: 100 MG, Q4W, UPPER ARM THIGHS OR ABDOMEN

REACTIONS (1)
  - Respiratory distress [Recovering/Resolving]
